FAERS Safety Report 5219567-9 (Version None)
Quarter: 2007Q1

REPORT INFORMATION
  Report Type: 
  Country: None (occurrence: None)
  Receive Date: 20070125
  Receipt Date: 20070115
  Transmission Date: 20070707
  Serious: Yes (Hospitalization)
  Sender: FDA-Public Use
  Company Number: FR-PFIZER INC-2007004388

PATIENT
  Age: 78 Year
  Sex: Female

DRUGS (1)
  1. SOLU-MEDROL [Suspect]
     Route: 042
     Dates: start: 20061124, end: 20061129

REACTIONS (2)
  - CONFUSIONAL STATE [None]
  - HALLUCINATION [None]
